FAERS Safety Report 11872273 (Version 1)
Quarter: 2015Q4

REPORT INFORMATION
  Report Type: Report from Study
  Country: JP (occurrence: JP)
  Receive Date: 20151228
  Receipt Date: 20151228
  Transmission Date: 20160305
  Serious: Yes (Death, Life-Threatening, Other)
  Sender: FDA-Public Use
  Company Number: JP-OTSUKA-2015_016912

PATIENT
  Age: 88 Year
  Sex: Female

DRUGS (28)
  1. TOLVAPTAN [Suspect]
     Active Substance: TOLVAPTAN
     Indication: FLUID RETENTION
     Dosage: 3.75 MG, QD, IN THE MORNING
     Route: 048
     Dates: start: 20150312, end: 20150313
  2. DOBUPUM [Concomitant]
     Active Substance: DOBUTAMINE HYDROCHLORIDE
     Indication: CARDIAC FAILURE
     Dosage: 200 ML, DAILY DOSE
     Route: 042
     Dates: start: 20150310, end: 20150310
  3. SACCHARATED IRON OXIDE [Concomitant]
     Active Substance: IRON SUCROSE
     Indication: ANAEMIA
     Dosage: 80 MG, DAILY DOSE
     Route: 042
     Dates: start: 20150316, end: 20150324
  4. FUROSEMIDE. [Concomitant]
     Active Substance: FUROSEMIDE
     Indication: CARDIAC FAILURE
     Dosage: 20 MG, DAILY DOSE
     Route: 042
     Dates: start: 20150310, end: 20150315
  5. CRESTOR [Concomitant]
     Active Substance: ROSUVASTATIN CALCIUM
     Indication: PRODUCT USED FOR UNKNOWN INDICATION
     Dosage: 5 MG, DAILY DOSE
     Route: 048
     Dates: start: 20150310, end: 20150324
  6. DEXMEDETOMIDINE HYDROCHLORIDE. [Concomitant]
     Active Substance: DEXMEDETOMIDINE HYDROCHLORIDE
     Dosage: 600 ?G, UNK
     Route: 042
     Dates: start: 20150320, end: 20150322
  7. DOPAMINE HYDROCHLORIDE. [Concomitant]
     Active Substance: DOPAMINE HYDROCHLORIDE
     Dosage: 100 MG, UNK
     Route: 042
     Dates: start: 20150311, end: 20150315
  8. DOPAMINE HYDROCHLORIDE. [Concomitant]
     Active Substance: DOPAMINE HYDROCHLORIDE
     Dosage: 100 MG, UNK
     Route: 042
     Dates: start: 20150317, end: 20150318
  9. DOBUPUM [Concomitant]
     Active Substance: DOBUTAMINE HYDROCHLORIDE
     Dosage: 150 ML, UNK
     Route: 042
     Dates: start: 20150324, end: 20150324
  10. DOBUPUM [Concomitant]
     Active Substance: DOBUTAMINE HYDROCHLORIDE
     Dosage: 100 ML, UNK
     Route: 042
     Dates: start: 20150311, end: 20150314
  11. DEXMEDETOMIDINE HYDROCHLORIDE. [Concomitant]
     Active Substance: DEXMEDETOMIDINE HYDROCHLORIDE
     Indication: SEDATION
     Dosage: 600 ?G, DAILY DOSE
     Route: 042
     Dates: start: 20150310, end: 20150310
  12. DIART [Concomitant]
     Active Substance: AZOSEMIDE
     Indication: CARDIAC FAILURE
     Dosage: 7.5 MG,DAILY DOSE
     Route: 048
     Dates: start: 20150314, end: 20150324
  13. MAINTATE [Concomitant]
     Active Substance: BISOPROLOL FUMARATE
     Indication: CARDIAC FAILURE
     Dosage: 0.625 MG, DAILY DOSE
     Route: 048
     Dates: start: 20150314, end: 20150324
  14. DOPAMINE HYDROCHLORIDE. [Concomitant]
     Active Substance: DOPAMINE HYDROCHLORIDE
     Dosage: 150 MG, UNK
     Route: 042
     Dates: start: 20150316, end: 20150316
  15. DOPAMINE HYDROCHLORIDE. [Concomitant]
     Active Substance: DOPAMINE HYDROCHLORIDE
     Dosage: 100 MG, UNK
     Route: 042
     Dates: start: 20150320, end: 20150324
  16. DEXMEDETOMIDINE HYDROCHLORIDE. [Concomitant]
     Active Substance: DEXMEDETOMIDINE HYDROCHLORIDE
     Dosage: 800 ?G, DAILY DOSE
     Route: 042
     Dates: start: 20150323, end: 20150323
  17. DEXMEDETOMIDINE HYDROCHLORIDE. [Concomitant]
     Active Substance: DEXMEDETOMIDINE HYDROCHLORIDE
     Dosage: 400 ?G, UNK
     Route: 042
     Dates: start: 20150324, end: 20150324
  18. PLAVIX [Concomitant]
     Active Substance: CLOPIDOGREL BISULFATE
     Indication: CARDIAC FAILURE
     Dosage: 75 MG, DAILY DOSE
     Route: 048
     Dates: start: 20150310, end: 20150324
  19. DOPAMINE HYDROCHLORIDE. [Concomitant]
     Active Substance: DOPAMINE HYDROCHLORIDE
     Dosage: 150 MG, UNK
     Route: 042
     Dates: start: 20150319, end: 20150319
  20. DOBUPUM [Concomitant]
     Active Substance: DOBUTAMINE HYDROCHLORIDE
     Dosage: 250 ML, UNK
     Route: 042
     Dates: start: 20150318, end: 20150323
  21. DEXMEDETOMIDINE HYDROCHLORIDE. [Concomitant]
     Active Substance: DEXMEDETOMIDINE HYDROCHLORIDE
     Dosage: 400 ?G, UNK
     Route: 042
     Dates: start: 20150311, end: 20150313
  22. DEXMEDETOMIDINE HYDROCHLORIDE. [Concomitant]
     Active Substance: DEXMEDETOMIDINE HYDROCHLORIDE
     Dosage: 200 ?G, UNK
     Route: 042
     Dates: start: 20150314, end: 20150319
  23. BAYASPIRIN [Concomitant]
     Active Substance: ASPIRIN
     Indication: CARDIAC FAILURE
     Dosage: 100 MG, DAILY DOSE
     Route: 048
     Dates: start: 20150310, end: 20150324
  24. ZOSYN [Concomitant]
     Active Substance: PIPERACILLIN SODIUM\TAZOBACTAM SODIUM
     Indication: WHITE BLOOD CELL COUNT INCREASED
     Dosage: 9 G, DAILY DOSE
     Route: 042
     Dates: start: 20150316, end: 20150322
  25. FINIBAX [Concomitant]
     Active Substance: DORIPENEM MONOHYDRATE
     Indication: WHITE BLOOD CELL COUNT INCREASED
     Dosage: 0.5 G, DAILY DOSE
     Route: 042
     Dates: start: 20150323, end: 20150324
  26. BFLUID [Concomitant]
     Active Substance: AMINO ACIDS\DEXTROSE\ELECTROLYTES NOS\VITAMINS
     Indication: FLUID REPLACEMENT
     Dosage: 500 ML, DAILY DOSE
     Route: 042
     Dates: start: 20150310, end: 20150324
  27. DOPAMINE HYDROCHLORIDE. [Concomitant]
     Active Substance: DOPAMINE HYDROCHLORIDE
     Indication: CARDIAC FAILURE
     Dosage: 150 MG, DAILY DOSE
     Route: 042
     Dates: start: 20150310, end: 20150310
  28. DOBUPUM [Concomitant]
     Active Substance: DOBUTAMINE HYDROCHLORIDE
     Dosage: 200 ML, UNK
     Route: 042
     Dates: start: 20150315, end: 20150317

REACTIONS (6)
  - Condition aggravated [Not Recovered/Not Resolved]
  - Renal impairment [Not Recovered/Not Resolved]
  - White blood cell count increased [Not Recovered/Not Resolved]
  - Cardiogenic shock [Fatal]
  - Hypernatraemia [Not Recovered/Not Resolved]
  - Anaemia [Not Recovered/Not Resolved]

NARRATIVE: CASE EVENT DATE: 20150314
